FAERS Safety Report 5448619-3 (Version None)
Quarter: 2007Q3

REPORT INFORMATION
  Report Type: 
  Country: None (occurrence: None)
  Receive Date: 20070906
  Receipt Date: 20070906
  Transmission Date: 20080115
  Serious: No
  Sender: FDA-Public Use
  Company Number: None

PATIENT
  Age: 81 Year
  Sex: Male

DRUGS (1)
  1. OMEPRAZOLE [Suspect]
     Dosage: 20MG EVERY DAY PO
     Route: 048
     Dates: start: 20070710, end: 20070802

REACTIONS (3)
  - BREAST TENDERNESS [None]
  - GYNAECOMASTIA [None]
  - HYPOGONADISM [None]
